FAERS Safety Report 11125269 (Version 2)
Quarter: 2015Q2

REPORT INFORMATION
  Report Type: Spontaneous
  Country: JP (occurrence: JP)
  Receive Date: 20150520
  Receipt Date: 20150624
  Transmission Date: 20150821
  Serious: Yes (Hospitalization)
  Sender: FDA-Public Use
  Company Number: JP-ASTRAZENECA-2015SE45272

PATIENT
  Age: 88 Year
  Sex: Female

DRUGS (2)
  1. ARIMIDEX [Suspect]
     Active Substance: ANASTROZOLE
     Indication: ADJUVANT THERAPY
     Route: 048
     Dates: start: 201503
  2. ARIMIDEX [Suspect]
     Active Substance: ANASTROZOLE
     Indication: BREAST CANCER FEMALE
     Route: 048
     Dates: start: 201503

REACTIONS (1)
  - Acquired Von Willebrand^s disease [Recovering/Resolving]

NARRATIVE: CASE EVENT DATE: 20150413
